FAERS Safety Report 9371834 (Version 1)
Quarter: 2013Q2

REPORT INFORMATION
  Report Type: Report from Study
  Country: US (occurrence: US)
  Receive Date: 20130627
  Receipt Date: 20130627
  Transmission Date: 20140414
  Serious: Yes (Other)
  Sender: FDA-Public Use
  Company Number: US-MYLANLABS-2012S1007732

PATIENT
  Age: 22 Year
  Sex: Male
  Weight: 74.12 kg

DRUGS (20)
  1. CLOZAPINE TABLETS [Suspect]
     Indication: PSYCHOTIC DISORDER
  2. CLOZAPINE TABLETS [Suspect]
     Indication: OBSESSIVE-COMPULSIVE DISORDER
  3. CLOZAPINE TABLETS [Suspect]
     Indication: INTERMITTENT EXPLOSIVE DISORDER
  4. CLOZAPINE TABLETS [Suspect]
     Indication: PSYCHOTIC DISORDER
  5. CLOZAPINE TABLETS [Suspect]
     Indication: OBSESSIVE-COMPULSIVE DISORDER
  6. CLOZAPINE TABLETS [Suspect]
     Indication: INTERMITTENT EXPLOSIVE DISORDER
  7. CLOZAPINE TABLETS [Suspect]
     Indication: PSYCHOTIC DISORDER
     Dates: start: 20120220, end: 20120724
  8. CLOZAPINE TABLETS [Suspect]
     Indication: OBSESSIVE-COMPULSIVE DISORDER
     Dates: start: 20120220, end: 20120724
  9. CLOZAPINE TABLETS [Suspect]
     Indication: INTERMITTENT EXPLOSIVE DISORDER
     Dates: start: 20120220, end: 20120724
  10. CLOZAPINE TABLETS [Suspect]
     Indication: PSYCHOTIC DISORDER
     Dates: start: 20120220, end: 20120724
  11. CLOZAPINE TABLETS [Suspect]
     Indication: OBSESSIVE-COMPULSIVE DISORDER
     Dates: start: 20120220, end: 20120724
  12. CLOZAPINE TABLETS [Suspect]
     Indication: INTERMITTENT EXPLOSIVE DISORDER
     Dates: start: 20120220, end: 20120724
  13. TOPIRAMATE [Concomitant]
     Dates: start: 200908, end: 201108
  14. EFFEXOR [Concomitant]
     Dates: start: 200908, end: 200910
  15. FLUOXETINE [Concomitant]
     Dates: start: 200910, end: 201102
  16. FLUVOXAMINE [Concomitant]
     Dates: start: 201102, end: 201108
  17. PAROXETINE [Concomitant]
     Dates: start: 201108
  18. SEROQUEL [Concomitant]
     Dates: start: 201110, end: 201202
  19. ZYPREXA [Concomitant]
     Dates: start: 201205
  20. MELATONIN [Concomitant]
     Dates: start: 201207

REACTIONS (2)
  - Granulocytopenia [Not Recovered/Not Resolved]
  - White blood cell count decreased [Not Recovered/Not Resolved]
